FAERS Safety Report 15399236 (Version 2)
Quarter: 2018Q4

REPORT INFORMATION
  Report Type: Not Available
  Country: US (occurrence: US)
  Receive Date: 20180918
  Receipt Date: 20181004
  Transmission Date: 20190204
  Serious: Yes (Death)
  Sender: FDA-Public Use
  Company Number: US-NEUROCRINE BIOSCIENCES INC.-2018NBI02819

PATIENT
  Age: 75 Year
  Sex: Male

DRUGS (4)
  1. INGREZZA [Suspect]
     Active Substance: VALBENAZINE
     Indication: TARDIVE DYSKINESIA
     Route: 048
     Dates: start: 20180709, end: 201809
  2. DEPAKOTE [Concomitant]
     Active Substance: DIVALPROEX SODIUM
     Indication: BIPOLAR DISORDER
     Dosage: 3 TABS IN THE EVENING
  3. LAMOTRIGINE. [Concomitant]
     Active Substance: LAMOTRIGINE
     Indication: BIPOLAR DISORDER
     Dosage: 1 AT BEDTIME
  4. BENZTROPINE. [Concomitant]
     Active Substance: BENZTROPINE
     Indication: DYSTONIA

REACTIONS (1)
  - Death [Fatal]

NARRATIVE: CASE EVENT DATE: 20180906
